FAERS Safety Report 7130164-0 (Version None)
Quarter: 2010Q4

REPORT INFORMATION
  Report Type: 
  Country: None (occurrence: None)
  Receive Date: 20101112
  Receipt Date: 20101027
  Transmission Date: 20110411
  Serious: Yes (Death, Hospitalization, Other)
  Sender: FDA-Public Use
  Company Number: 2010004232

PATIENT
  Age: 72 Year
  Sex: Male

DRUGS (7)
  1. TARCEVA [Suspect]
     Indication: LUNG ADENOCARCINOMA
     Dosage: 150 MG, 1 IN 1 D, ORAL
     Route: 048
     Dates: start: 20071208, end: 20080224
  2. GEFITINIB [Suspect]
     Indication: LUNG ADENOCARCINOMA
     Dosage: 250 MG, QD, ORAL
     Route: 048
     Dates: start: 20060120, end: 20080225
  3. LACTOBACILLUS [Concomitant]
  4. TRAMADOL [Concomitant]
  5. DOMPERIDONE [Concomitant]
  6. TETRACYCLINE [Concomitant]
  7. CETIRIZINE HCL [Concomitant]

REACTIONS (21)
  - BLOOD CREATININE INCREASED [None]
  - BLOOD POTASSIUM DECREASED [None]
  - BLOOD PRESSURE SYSTOLIC INCREASED [None]
  - BLOOD UREA INCREASED [None]
  - CARDIOPULMONARY FAILURE [None]
  - CONTUSION [None]
  - DISSEMINATED INTRAVASCULAR COAGULATION [None]
  - DIZZINESS [None]
  - EMPYEMA [None]
  - HAEMOGLOBIN DECREASED [None]
  - HEADACHE [None]
  - HEART RATE INCREASED [None]
  - INJECTION SITE HAEMATOMA [None]
  - INJECTION SITE HAEMORRHAGE [None]
  - LYMPHOPENIA [None]
  - PLEURAL EFFUSION [None]
  - PRURITUS [None]
  - RESPIRATORY RATE INCREASED [None]
  - SEPSIS [None]
  - THROMBOCYTOPENIA [None]
  - VISION BLURRED [None]
